FAERS Safety Report 10252870 (Version 7)
Quarter: 2015Q3

REPORT INFORMATION
  Report Type: Report from Study
  Country: US (occurrence: US)
  Receive Date: 20140623
  Receipt Date: 20150828
  Transmission Date: 20151125
  Serious: Yes (Other)
  Sender: FDA-Public Use
  Company Number: US-SA-2014SA074169

PATIENT
  Age: 33 Year
  Sex: Female

DRUGS (4)
  1. REBIF [Concomitant]
     Active Substance: INTERFERON BETA-1A
     Dates: start: 20080801, end: 20140512
  2. WELLBUTRIN [Concomitant]
     Active Substance: BUPROPION HYDROCHLORIDE
  3. AUBAGIO [Suspect]
     Active Substance: TERIFLUNOMIDE
     Indication: MULTIPLE SCLEROSIS
     Route: 048
     Dates: start: 20140504
  4. AUBAGIO [Suspect]
     Active Substance: TERIFLUNOMIDE
     Indication: MULTIPLE SCLEROSIS
     Route: 048
     Dates: start: 20140514

REACTIONS (19)
  - Gait disturbance [Unknown]
  - Contusion [Unknown]
  - Erythema [Unknown]
  - Unevaluable event [Unknown]
  - Dysmenorrhoea [Unknown]
  - Alopecia [Recovering/Resolving]
  - Pruritus [Unknown]
  - Menstrual disorder [Not Recovered/Not Resolved]
  - Thrombosis [Unknown]
  - Menorrhagia [Unknown]
  - Respiratory tract infection [Unknown]
  - Dizziness [Unknown]
  - Fatigue [Not Recovered/Not Resolved]
  - Urinary tract disorder [Unknown]
  - Dermatitis [Not Recovered/Not Resolved]
  - Ill-defined disorder [Unknown]
  - Upper respiratory tract infection [Unknown]
  - Stress [Unknown]
  - Temperature intolerance [Unknown]

NARRATIVE: CASE EVENT DATE: 201408
